FAERS Safety Report 6150698-5 (Version None)
Quarter: 2009Q2

REPORT INFORMATION
  Report Type: 
  Country: None (occurrence: None)
  Receive Date: 20090409
  Receipt Date: 20090403
  Transmission Date: 20091009
  Serious: Yes (Other)
  Sender: FDA-Public Use
  Company Number: PHEH2006US11386

PATIENT
  Sex: Female

DRUGS (6)
  1. ZOMETA [Suspect]
     Indication: BREAST CANCER
  2. CHEMOTHERAPEUTICS NOS [Concomitant]
  3. DIGOXIN [Concomitant]
  4. ZOCOR [Concomitant]
  5. LASIX [Concomitant]
     Indication: CARDIAC FAILURE CONGESTIVE
  6. COUMADIN [Concomitant]

REACTIONS (15)
  - ANXIETY [None]
  - BREAST CANCER METASTATIC [None]
  - DECREASED INTEREST [None]
  - DEFORMITY [None]
  - EMOTIONAL DISTRESS [None]
  - FACIAL PALSY [None]
  - GENERAL PHYSICAL HEALTH DETERIORATION [None]
  - HERPES ZOSTER OTICUS [None]
  - HYPOPHAGIA [None]
  - LIFE EXPECTANCY SHORTENED [None]
  - ORAL DISORDER [None]
  - OSTEONECROSIS [None]
  - OSTEOPENIA [None]
  - PAIN [None]
  - TOOTH EXTRACTION [None]
